FAERS Safety Report 20518699 (Version 2)
Quarter: 2022Q2

REPORT INFORMATION
  Report Type: Spontaneous
  Country: US (occurrence: None)
  Receive Date: 20220225
  Receipt Date: 20220413
  Transmission Date: 20220720
  Serious: Yes (Hospitalization)
  Sender: FDA-Public Use
  Company Number: 2022A079834

PATIENT
  Age: 694 Month
  Sex: Female
  Weight: 72.6 kg

DRUGS (11)
  1. FASENRA [Suspect]
     Active Substance: BENRALIZUMAB
     Indication: Asthma
     Route: 058
     Dates: start: 20220214
  2. SYMBICORT [Suspect]
     Active Substance: BUDESONIDE\FORMOTEROL FUMARATE DIHYDRATE
     Indication: Asthma
     Dosage: 160/4.5 MCG 2 PUFFS, TWO TIMES A DAY
     Route: 055
     Dates: start: 2017
  3. SPIRIVA [Concomitant]
     Active Substance: TIOTROPIUM BROMIDE MONOHYDRATE
     Dosage: 2 PUFFS
     Route: 065
  4. FLONASE [Concomitant]
     Active Substance: FLUTICASONE PROPIONATE
     Dosage: EACH NOSTRIL 2 SPRAYS
     Route: 045
  5. ANTIHISTAMINE ZYRTEC [Concomitant]
     Route: 065
  6. MONTELUKAST [Concomitant]
     Active Substance: MONTELUKAST SODIUM
     Indication: Asthma
     Route: 065
  7. ESCITALOPRAM [Concomitant]
     Active Substance: ESCITALOPRAM OXALATE
     Indication: Anxiety
     Route: 065
  8. BUDESONIDE [Concomitant]
     Active Substance: BUDESONIDE
     Route: 055
  9. ALBUTEROL [Concomitant]
     Active Substance: ALBUTEROL
     Dosage: AS NEEDED DONE EVERY DAY THIS WEEK AS REQUIRED
     Route: 065
  10. CEFDINIR [Concomitant]
     Active Substance: CEFDINIR
     Route: 065
  11. PREDNISONE [Concomitant]
     Active Substance: PREDNISONE
     Dosage: 40.0MG UNKNOWN
     Route: 065

REACTIONS (12)
  - Dyspnoea [Unknown]
  - Oxygen saturation decreased [Unknown]
  - Asthma [Unknown]
  - Illness [Not Recovered/Not Resolved]
  - Peak expiratory flow rate decreased [Not Recovered/Not Resolved]
  - Upper respiratory tract infection [Unknown]
  - Pain [Not Recovered/Not Resolved]
  - Cough [Not Recovered/Not Resolved]
  - Restlessness [Unknown]
  - Viral infection [Unknown]
  - Pyrexia [Not Recovered/Not Resolved]
  - Headache [Not Recovered/Not Resolved]

NARRATIVE: CASE EVENT DATE: 20210501
